FAERS Safety Report 20428598 (Version 5)
Quarter: 2025Q3

REPORT INFORMATION
  Report Type: Report from Study
  Country: JP (occurrence: JP)
  Receive Date: 20220204
  Receipt Date: 20250824
  Transmission Date: 20251021
  Serious: Yes (Hospitalization)
  Sender: TAKEDA
  Company Number: JP-TAKEDA-2022TJP009286

PATIENT
  Age: 51 Year
  Sex: Male
  Weight: 75 kg

DRUGS (16)
  1. TEDUGLUTIDE [Suspect]
     Active Substance: TEDUGLUTIDE
     Indication: Short-bowel syndrome
  2. TEDUGLUTIDE [Suspect]
     Active Substance: TEDUGLUTIDE
     Dosage: UNK UNK, 3/WEEK
  3. TEDUGLUTIDE [Suspect]
     Active Substance: TEDUGLUTIDE
  4. TEDUGLUTIDE [Suspect]
     Active Substance: TEDUGLUTIDE
  5. SANDOSTATIN [Concomitant]
     Active Substance: OCTREOTIDE ACETATE
     Indication: Short-bowel syndrome
  6. LEVETIRACETAM [Concomitant]
     Active Substance: LEVETIRACETAM
  7. PENTASA [Concomitant]
     Active Substance: MESALAMINE
  8. URSODIOL [Concomitant]
     Active Substance: URSODIOL
  9. FEBUXOSTAT [Concomitant]
     Active Substance: FEBUXOSTAT
  10. LOPEMIN [Concomitant]
  11. ALPRAZOLAM [Concomitant]
     Active Substance: ALPRAZOLAM
  12. ETIZOLAM [Concomitant]
     Active Substance: ETIZOLAM
  13. MIRTAZAPINE [Concomitant]
     Active Substance: MIRTAZAPINE
  14. BELSOMRA [Concomitant]
     Active Substance: SUVOREXANT
  15. AMINO ACIDS\CARBOHYDRATES\MINERALS\SOYBEAN OIL\VITAMINS [Concomitant]
     Active Substance: AMINO ACIDS\CARBOHYDRATES\MINERALS\SOYBEAN OIL\VITAMINS
  16. AMINO ACIDS\DEXTROSE\ELECTROLYTES NOS\SOYBEAN OIL\VITAMINS [Concomitant]
     Active Substance: AMINO ACIDS\DEXTROSE\ELECTROLYTES NOS\SOYBEAN OIL\VITAMINS

REACTIONS (4)
  - Blood creatinine increased [Recovered/Resolved]
  - Alopecia [Not Recovered/Not Resolved]
  - Incorrect dose administered [Recovered/Resolved]
  - Inappropriate schedule of product administration [Recovered/Resolved]

NARRATIVE: CASE EVENT DATE: 20220105
